FAERS Safety Report 24838046 (Version 3)
Quarter: 2025Q1

REPORT INFORMATION
  Report Type: Spontaneous
  Country: FR (occurrence: FR)
  Receive Date: 20250113
  Receipt Date: 20250213
  Transmission Date: 20250408
  Serious: Yes (Death)
  Sender: MERCK SHARP & DOHME LLC
  Company Number: FR-009507513-2501FRA001883

PATIENT
  Age: 65 Year
  Sex: Female

DRUGS (5)
  1. SOTATERCEPT [Suspect]
     Active Substance: SOTATERCEPT
     Indication: Pulmonary arterial hypertension
     Dosage: DOSE DESCRIPTION : UNK
     Dates: start: 20240902, end: 20240902
  2. SOTATERCEPT [Suspect]
     Active Substance: SOTATERCEPT
     Dosage: DOSE DESCRIPTION : UNK
     Dates: start: 20240920, end: 20240920
  3. SOTATERCEPT [Suspect]
     Active Substance: SOTATERCEPT
     Dosage: DOSE DESCRIPTION : UNK
     Dates: start: 20241014, end: 20241014
  4. SOTATERCEPT [Suspect]
     Active Substance: SOTATERCEPT
     Dosage: DOSE DESCRIPTION : UNK
     Dates: start: 20241104, end: 20241104
  5. SOTATERCEPT [Suspect]
     Active Substance: SOTATERCEPT
     Dosage: DOSE DESCRIPTION : UNK
     Dates: start: 20241129, end: 20241129

REACTIONS (7)
  - Volvulus [Fatal]
  - Incorrect product administration duration [Unknown]
  - Intestinal ischaemia [Fatal]
  - Incorrect product administration duration [Unknown]
  - Gastrointestinal surgery [Unknown]
  - Septic shock [Fatal]
  - Incorrect product administration duration [Unknown]

NARRATIVE: CASE EVENT DATE: 20240920
